FAERS Safety Report 5062305-3 (Version None)
Quarter: 2006Q3

REPORT INFORMATION
  Report Type: 
  Country: None (occurrence: None)
  Receive Date: 20060721
  Receipt Date: 20060703
  Transmission Date: 20061208
  Serious: Yes (Disabling)
  Sender: FDA-Public Use
  Company Number: RO200607000497

PATIENT
  Age: 69 Year
  Sex: Female
  Weight: 62 kg

DRUGS (3)
  1. FORTEO [Suspect]
     Indication: OSTEOPOROSIS
     Dosage: 20 UNK, DAILY (1/D), 20MCG/80 MICROLITERS, SUBCUTANEOUS
     Route: 058
     Dates: start: 20050801, end: 20060703
  2. FORTEO PEN (250MCG/ML) (FORTEO PEN 250MCG/ML (3MLL)) PEN, DISPOSABLE [Concomitant]
  3. ALENDRONATE SODIUM [Concomitant]

REACTIONS (5)
  - ARTHRALGIA [None]
  - CALCINOSIS [None]
  - LIGAMENT CALCIFICATION [None]
  - OVARIAN DISORDER [None]
  - UTERINE DISORDER [None]
